FAERS Safety Report 11561666 (Version 1)
Quarter: 2015Q3

REPORT INFORMATION
  Report Type: Other
  Country: US (occurrence: US)
  Receive Date: 20150928
  Receipt Date: 20150928
  Transmission Date: 20151125
  Serious: Yes (Other)
  Sender: FDA-Public Use
  Company Number: US-DEP_10337_2015

PATIENT
  Sex: Female

DRUGS (14)
  1. GRALISE [Suspect]
     Active Substance: GABAPENTIN
     Indication: PAIN
     Route: 048
     Dates: end: 201508
  2. TYLENOL [Concomitant]
     Active Substance: ACETAMINOPHEN
     Indication: PAIN
     Dosage: 1000 MG PER DAY PRN
     Route: 048
     Dates: start: 201408
  3. GRALISE [Suspect]
     Active Substance: GABAPENTIN
     Indication: PARAESTHESIA
     Route: 048
     Dates: end: 201508
  4. CRESTOR [Concomitant]
     Active Substance: ROSUVASTATIN CALCIUM
     Dosage: DF
  5. METFORMIN [Concomitant]
     Active Substance: METFORMIN HYDROCHLORIDE
     Dosage: DF
  6. TRAMADOL. [Concomitant]
     Active Substance: TRAMADOL
     Indication: PAIN
     Route: 048
     Dates: start: 2012
  7. GRALISE [Suspect]
     Active Substance: GABAPENTIN
     Indication: GAIT DISTURBANCE
     Route: 048
     Dates: end: 201508
  8. GRALISE [Suspect]
     Active Substance: GABAPENTIN
     Indication: HYPOAESTHESIA
     Route: 048
     Dates: end: 201508
  9. GABAPENTIN. [Concomitant]
     Active Substance: GABAPENTIN
     Indication: HYPOAESTHESIA
     Route: 048
     Dates: start: 2005
  10. GABAPENTIN. [Concomitant]
     Active Substance: GABAPENTIN
     Indication: GAIT DISTURBANCE
     Route: 048
     Dates: start: 2005
  11. GABAPENTIN. [Concomitant]
     Active Substance: GABAPENTIN
     Indication: PAIN
     Route: 048
     Dates: start: 2005
  12. IBUPROFEN. [Concomitant]
     Active Substance: IBUPROFEN
     Indication: PAIN
     Route: 048
     Dates: start: 201408
  13. GRALISE [Suspect]
     Active Substance: GABAPENTIN
     Indication: OFF LABEL USE
     Route: 048
     Dates: end: 201508
  14. GABAPENTIN. [Concomitant]
     Active Substance: GABAPENTIN
     Indication: PARAESTHESIA
     Route: 048
     Dates: start: 2005

REACTIONS (5)
  - Clonus [Not Recovered/Not Resolved]
  - Condition aggravated [Not Recovered/Not Resolved]
  - Inappropriate schedule of drug administration [Recovered/Resolved]
  - Tremor [Recovering/Resolving]
  - Cyst [Not Recovered/Not Resolved]
